FAERS Safety Report 20630957 (Version 15)
Quarter: 2023Q1

REPORT INFORMATION
  Report Type: Spontaneous
  Country: CA (occurrence: CA)
  Receive Date: 20220324
  Receipt Date: 20230328
  Transmission Date: 20230417
  Serious: Yes (Other)
  Sender: FDA-Public Use
  Company Number: CA-CELLTRION INC.-2022CA002776

PATIENT

DRUGS (25)
  1. INFLECTRA [Suspect]
     Active Substance: INFLIXIMAB-DYYB
     Indication: Crohn^s disease
     Dosage: 5 MG/KG, AT WEEK 0, 2 AND 6
     Route: 042
     Dates: start: 20220225
  2. INFLECTRA [Suspect]
     Active Substance: INFLIXIMAB-DYYB
     Dosage: 5 MG/KG, AT WEEK 0, 2 AND 6
     Route: 042
     Dates: start: 20220225, end: 20220408
  3. INFLECTRA [Suspect]
     Active Substance: INFLIXIMAB-DYYB
     Dosage: 5 MG/KG; AT WEEK 0, 2 AND 6 THEN EVERY 4 WEEKS
     Route: 042
     Dates: start: 20220311
  4. INFLECTRA [Suspect]
     Active Substance: INFLIXIMAB-DYYB
     Dosage: 5 MG/KG; AT WEEK 0, 2 AND 6 THEN EVERY 4 WEEKS
     Route: 042
     Dates: start: 20220408
  5. INFLECTRA [Suspect]
     Active Substance: INFLIXIMAB-DYYB
     Dosage: 5 MG/KG, EVERY 4 WEEK, 500 MG FIXED DOSE
     Route: 042
     Dates: start: 20220503
  6. INFLECTRA [Suspect]
     Active Substance: INFLIXIMAB-DYYB
     Dosage: 5 MG/KG, EVERY 4 WEEKS, 500 MG FIXED DOSE
     Route: 042
     Dates: start: 20220602
  7. INFLECTRA [Suspect]
     Active Substance: INFLIXIMAB-DYYB
     Dosage: 5 MG/KG, EVERY 4 WEEKS (500 MG FIXED DOSE)
     Route: 042
     Dates: start: 20220705
  8. INFLECTRA [Suspect]
     Active Substance: INFLIXIMAB-DYYB
     Dosage: 5 MG/KG, EVERY 4 WEEKS (500 MG FIXED DOSE)
     Route: 042
     Dates: start: 20220805
  9. INFLECTRA [Suspect]
     Active Substance: INFLIXIMAB-DYYB
     Dosage: 5 MG/KG, EVERY 4 WEEKS (500 MG FIXED DOSE)
     Route: 042
     Dates: start: 20220902
  10. INFLECTRA [Suspect]
     Active Substance: INFLIXIMAB-DYYB
     Dosage: 5 MG/KG, EVERY 4 WEEKS (500 MG FIXED DOSE)
     Route: 042
     Dates: start: 20221001
  11. INFLECTRA [Suspect]
     Active Substance: INFLIXIMAB-DYYB
     Dosage: 5 MG/KG, EVERY 4 WEEKS (500 MG FIXED DOSE)
     Route: 042
     Dates: start: 20221029
  12. INFLECTRA [Suspect]
     Active Substance: INFLIXIMAB-DYYB
     Dosage: 5 MG/KG, EVERY 4 WEEKS (500 MG FIXED DOSE)
     Route: 042
     Dates: start: 20221210
  13. INFLECTRA [Suspect]
     Active Substance: INFLIXIMAB-DYYB
     Dosage: 5 MG/KG, EVERY 4 WEEKS (500 MG FIXED DOSE)
     Route: 042
     Dates: start: 20230113
  14. INFLECTRA [Suspect]
     Active Substance: INFLIXIMAB-DYYB
     Dosage: 5 MG/KG, EVERY 4 WEEKS (500 MG FIXED DOSE)
     Route: 042
     Dates: start: 20230208
  15. INFLECTRA [Suspect]
     Active Substance: INFLIXIMAB-DYYB
     Dosage: 5 MG/KG, EVERY 4 WEEKS (500 MG FIXED DOSE)
     Route: 042
     Dates: start: 20230320
  16. DEXEDRINE [Concomitant]
     Active Substance: DEXTROAMPHETAMINE SULFATE
     Dosage: 1 DF
     Route: 065
  17. DEXEDRINE [Concomitant]
     Active Substance: DEXTROAMPHETAMINE SULFATE
     Dosage: 1 DF, DOSAGE NOT AVAILABLE
     Route: 065
  18. FOLIC ACID [Concomitant]
     Active Substance: FOLIC ACID
     Dosage: 1 DF
     Route: 065
  19. FOLIC ACID [Concomitant]
     Active Substance: FOLIC ACID
     Dosage: 1 DF, DOSAGE NOT AVAILABLE
     Route: 065
  20. METHOTREXATE [Concomitant]
     Active Substance: METHOTREXATE
     Dosage: 1 DF, DOSAGE NOT AVAILABLE - FREQUENCY NOT AVAILABLE
     Route: 065
     Dates: start: 20220225
  21. PREDNISONE [Concomitant]
     Active Substance: PREDNISONE
     Dosage: 15 MG
     Route: 065
  22. PREDNISONE [Concomitant]
     Active Substance: PREDNISONE
     Dosage: 15 MG, FREQUENCY NOT AVAILABLE
     Route: 065
  23. VANCOMYCIN [Concomitant]
     Active Substance: VANCOMYCIN
     Dosage: 1 DF
     Route: 065
  24. VITAMIN D3 [Concomitant]
     Active Substance: CHOLECALCIFEROL
     Dosage: 3000 IU
     Route: 065
  25. VITAMIN D3 [Concomitant]
     Active Substance: CHOLECALCIFEROL
     Dosage: 3000 IU, FREQUENCY NOT AVAILABLE
     Route: 065

REACTIONS (10)
  - Anal abscess [Not Recovered/Not Resolved]
  - Condition aggravated [Not Recovered/Not Resolved]
  - Anal fissure [Not Recovered/Not Resolved]
  - Anal fistula [Not Recovered/Not Resolved]
  - Fistula [Not Recovered/Not Resolved]
  - Abscess [Not Recovered/Not Resolved]
  - Nasopharyngitis [Recovering/Resolving]
  - Tonsillar hypertrophy [Not Recovered/Not Resolved]
  - COVID-19 [Unknown]
  - Off label use [Unknown]

NARRATIVE: CASE EVENT DATE: 20220101
